FAERS Safety Report 9515532 (Version 2)
Quarter: 2013Q4

REPORT INFORMATION
  Report Type: Report from Study
  Country: BR (occurrence: BR)
  Receive Date: 20130911
  Receipt Date: 20131115
  Transmission Date: 20140711
  Serious: Yes (Death, Other)
  Sender: FDA-Public Use
  Company Number: PHHY2013BR099723

PATIENT
  Sex: Male

DRUGS (5)
  1. DIOVAN [Suspect]
     Indication: HYPERTENSION
     Dosage: 2 DF (320MG VALS), DAILY AT NIGHT
  2. DIOVAN AMLO [Suspect]
     Indication: HYPERTENSION
     Dosage: 1 DF (VALS 160MG, AMLO 5MG) DAILY
     Route: 048
     Dates: start: 20040604
  3. DIOVAN AMLO FIX [Suspect]
     Indication: HYPERTENSION
     Dosage: 1 DF (VALS 160MG, AMLO 5MG) DAILY
     Route: 048
  4. BETASERC [Concomitant]
     Indication: LABYRINTHITIS
     Dosage: 2 DF (24MG) DAILY
     Route: 048
     Dates: start: 20040604
  5. EXIT [Concomitant]
     Indication: LABYRINTHITIS
     Dosage: 3 DF (CINA 400MG, PIRA 25MG) DAILY
     Route: 048
     Dates: start: 20100518

REACTIONS (4)
  - Infarction [Fatal]
  - Cardiac arrest [Fatal]
  - Depression [Recovered/Resolved]
  - Pulmonary embolism [Unknown]
